FAERS Safety Report 5026237-9 (Version None)
Quarter: 2006Q2

REPORT INFORMATION
  Report Type: 
  Country: None (occurrence: None)
  Receive Date: 20060608
  Receipt Date: 20060529
  Transmission Date: 20061013
  Serious: Yes (Hospitalization)
  Sender: FDA-Public Use
  Company Number: 2006054255

PATIENT
  Age: 76 Year
  Sex: Female
  Weight: 67 kg

DRUGS (20)
  1. SOLU-MEDROL [Suspect]
     Indication: ILL-DEFINED DISORDER
     Dosage: INTRAMUSCULAR
     Route: 030
     Dates: start: 20051031, end: 20051106
  2. ALTIM (CORTIVAZOL) [Suspect]
     Indication: ILL-DEFINED DISORDER
     Dosage: INTRA-ARTERIAL
     Route: 013
     Dates: start: 20050930, end: 20051101
  3. TETRAZEPAM (TETRAZEPAM) [Suspect]
     Indication: ILL-DEFINED DISORDER
     Dosage: ORAL
     Route: 048
     Dates: start: 20051031, end: 20051115
  4. TRAMADOL HCL [Suspect]
     Indication: ILL-DEFINED DISORDER
     Dosage: ORAL
     Route: 048
     Dates: start: 20051031, end: 20051115
  5. COAPROVEL (HYDROCHLOROTHIAZIDE, IRBESARTAN) [Suspect]
     Indication: ILL-DEFINED DISORDER
     Dosage: (1 IN 1 D), ORAL
     Route: 048
     Dates: start: 20040615
  6. PANTOPRAZOLE SODIUM [Suspect]
     Indication: ILL-DEFINED DISORDER
     Dosage: ORAL
     Route: 048
     Dates: start: 20050922, end: 20051115
  7. VENLAFAXINE HCL [Concomitant]
  8. ANETHOLE TRITHIONE (ANETHOLE TRITHIONE) [Concomitant]
  9. SELEGILINE HYROCHLORIDE (SELEGILINE HYDROCHLORIDE) [Concomitant]
  10. CLONAZEPAM [Concomitant]
  11. FUROSEMIDE [Concomitant]
  12. DILTIAZEM YDROCHLORIDE (DILTIAZEM HYDROCHLORIDE) [Concomitant]
  13. MACROGOL (MARCROGOL) [Concomitant]
  14. DIALGIREX (DEXTROPROPOXYPHENE HYDROCHLORIDE, PARACETAMOL) [Concomitant]
  15. ACETAMINOPHEN [Concomitant]
  16. CALCITONIN, SALMON (CALCITONIN, SALMON) [Concomitant]
  17. DOMPERIDONE (DOMPERIDONE) [Concomitant]
  18. LAMALINE (FRANCE) (CAFFEINE, OPIUM TINCTURE, PARACETAMOL) [Concomitant]
  19. ALL OTHER THERAPEUTIC PRODUCTS (ALL OTHER THERAPEUTIC PRODUCTS) [Concomitant]
  20. HEXABRIX [Concomitant]

REACTIONS (10)
  - LUPUS-LIKE SYNDROME [None]
  - NIKOLSKY'S SIGN [None]
  - NORMOCHROMIC NORMOCYTIC ANAEMIA [None]
  - PRURIGO [None]
  - RASH ERYTHEMATOUS [None]
  - RASH PAPULAR [None]
  - RASH PRURITIC [None]
  - SJOGREN'S SYNDROME [None]
  - SKIN EXFOLIATION [None]
  - TOXIC SKIN ERUPTION [None]
